FAERS Safety Report 7122447-5 (Version None)
Quarter: 2010Q4

REPORT INFORMATION
  Report Type: 
  Country: None (occurrence: None)
  Receive Date: 20101122
  Receipt Date: 20101122
  Transmission Date: 20110411
  Serious: Yes (Hospitalization)
  Sender: FDA-Public Use
  Company Number: None

PATIENT
  Sex: Female
  Weight: 106.5 kg

DRUGS (1)
  1. METOCLOPRAMIDE HCL [Suspect]
     Indication: HEADACHE
     Dosage: 10 MG TID PO
     Route: 048

REACTIONS (3)
  - LACERATION [None]
  - MANIA [None]
  - SUICIDAL IDEATION [None]
